FAERS Safety Report 6713718-2 (Version None)
Quarter: 2010Q2

REPORT INFORMATION
  Report Type: 
  Country: None (occurrence: None)
  Receive Date: 20100506
  Receipt Date: 20100504
  Transmission Date: 20101027
  Serious: Yes (Hospitalization, Other)
  Sender: FDA-Public Use
  Company Number: JP-SANOFI-AVENTIS-2010SA007580

PATIENT
  Age: 55 Year
  Sex: Male
  Weight: 54 kg

DRUGS (13)
  1. ELPLAT [Suspect]
     Indication: COLON CANCER
     Route: 041
     Dates: start: 20091216, end: 20091216
  2. ELPLAT [Suspect]
     Route: 041
     Dates: start: 20100129, end: 20100129
  3. TS-1 [Suspect]
     Indication: COLON CANCER
     Route: 048
     Dates: start: 20091216, end: 20091230
  4. TS-1 [Suspect]
     Route: 048
     Dates: start: 20100129, end: 20100130
  5. AVASTIN [Suspect]
     Indication: COLON CANCER
     Route: 041
     Dates: start: 20091216, end: 20091216
  6. AVASTIN [Suspect]
     Route: 041
     Dates: start: 20100129, end: 20100129
  7. GRANISETRON [Concomitant]
     Indication: PROPHYLAXIS OF NAUSEA AND VOMITING
     Route: 041
     Dates: start: 20091216, end: 20100129
  8. LENDORMIN [Concomitant]
     Indication: INSOMNIA
     Route: 048
     Dates: start: 20091215
  9. PURSENNID /SCH/ [Concomitant]
     Indication: CONSTIPATION
     Route: 048
     Dates: start: 20091218, end: 20100131
  10. LANSOPRAZOLE [Concomitant]
     Route: 048
     Dates: start: 20091209, end: 20100131
  11. CEFOPERAZONE SODIUM/SULBACTAM SODIUM [Concomitant]
     Indication: BILIARY TRACT INFECTION
     Route: 042
     Dates: start: 20091209
  12. MAGLAX [Concomitant]
     Indication: CONSTIPATION
     Route: 048
     Dates: start: 20091224
  13. DICLOFENAC SODIUM [Concomitant]
     Route: 048
     Dates: start: 20091226, end: 20100131

REACTIONS (3)
  - GASTROINTESTINAL PERFORATION [None]
  - HAEMOGLOBIN DECREASED [None]
  - ILEUS [None]
